FAERS Safety Report 23402366 (Version 1)
Quarter: 2024Q1

REPORT INFORMATION
  Report Type: Spontaneous
  Country: US (occurrence: US)
  Receive Date: 20240115
  Receipt Date: 20240115
  Transmission Date: 20240410
  Serious: No
  Sender: FDA-Public Use
  Company Number: US-PERRIGO-23US000514

PATIENT
  Age: 61 Year
  Sex: Female
  Weight: 76.19 kg

DRUGS (1)
  1. NICOTINE POLACRILEX [Suspect]
     Active Substance: NICOTINE
     Indication: Smoking cessation therapy
     Dosage: 2 MG, EVERY 1 TO 2 HOURS AS NEEDED
     Route: 002
     Dates: start: 20221226, end: 20230114

REACTIONS (3)
  - Condition aggravated [Recovered/Resolved]
  - Drug effect less than expected [Unknown]
  - Wrong technique in product usage process [Unknown]

NARRATIVE: CASE EVENT DATE: 20221226
